FAERS Safety Report 10839633 (Version 1)
Quarter: 2015Q1

REPORT INFORMATION
  Report Type: Spontaneous
  Country: FR (occurrence: None)
  Receive Date: 20150218
  Receipt Date: 20150218
  Transmission Date: 20150721
  Serious: Yes (Hospitalization)
  Sender: FDA-Public Use
  Company Number: FK201500789

PATIENT
  Age: 70 Year
  Sex: Female

DRUGS (2)
  1. ALIMTA (PREMETREXED DISODIUM) [Concomitant]
  2. CARBOPLATIN INJECTION 10MG/ML (CARBOPLATIN USP) (CARBOPLATIN USP) [Suspect]
     Active Substance: CARBOPLATIN
     Indication: NON-SMALL CELL LUNG CANCER
     Dosage: 350 MG, INTRAVENOUS (NOT OTHERWISE SPECIFIED)?
     Route: 042
     Dates: start: 20150123

REACTIONS (6)
  - Blood pressure decreased [None]
  - Pruritus [None]
  - Hyperhidrosis [None]
  - Oxygen saturation decreased [None]
  - Feeling hot [None]
  - Body temperature decreased [None]

NARRATIVE: CASE EVENT DATE: 20150123
